FAERS Safety Report 14080132 (Version 2)
Quarter: 2017Q4

REPORT INFORMATION
  Report Type: Report from Study
  Country: JP (occurrence: JP)
  Receive Date: 20171012
  Receipt Date: 20171120
  Transmission Date: 20180321
  Serious: Yes (Hospitalization)
  Sender: FDA-Public Use
  Company Number: JP-JNJFOC-20170203612

PATIENT
  Age: 29 Year
  Sex: Male
  Weight: 63 kg

DRUGS (3)
  1. YONDELIS [Suspect]
     Active Substance: TRABECTEDIN
     Indication: DESMOPLASTIC SMALL ROUND CELL TUMOUR
     Route: 042
     Dates: start: 20160607
  2. DEXAMETHASONE. [Concomitant]
     Active Substance: DEXAMETHASONE
     Route: 065
     Dates: start: 20160516
  3. YONDELIS [Suspect]
     Active Substance: TRABECTEDIN
     Indication: DESMOPLASTIC SMALL ROUND CELL TUMOUR
     Route: 042
     Dates: start: 20160516

REACTIONS (10)
  - Aspartate aminotransferase increased [Recovering/Resolving]
  - Alanine aminotransferase increased [Recovering/Resolving]
  - Haemoglobin decreased [Recovering/Resolving]
  - Gamma-glutamyltransferase increased [Not Recovered/Not Resolved]
  - Blood albumin decreased [Recovered/Resolved]
  - Platelet count decreased [Recovered/Resolved]
  - Blood alkaline phosphatase increased [Not Recovered/Not Resolved]
  - Neutrophil count decreased [Recovered/Resolved]
  - White blood cell count decreased [Recovered/Resolved]
  - Blood bilirubin increased [Recovered/Resolved]

NARRATIVE: CASE EVENT DATE: 20160520
